FAERS Safety Report 16785236 (Version 1)
Quarter: 2019Q3

REPORT INFORMATION
  Report Type: Spontaneous
  Country: SE (occurrence: SE)
  Receive Date: 20190909
  Receipt Date: 20190909
  Transmission Date: 20191005
  Serious: Yes (Hospitalization)
  Sender: FDA-Public Use
  Company Number: SE-009507513-1909SWE000887

PATIENT
  Age: 20 Year
  Sex: Female

DRUGS (3)
  1. MIRTAZAPINE. [Suspect]
     Active Substance: MIRTAZAPINE
     Dosage: UNCLEAR AMOUNT OF TABLETS
     Route: 048
     Dates: start: 20190208, end: 20190209
  2. LERGIGAN (PROMETHAZINE HYDROCHLORIDE) [Suspect]
     Active Substance: PROMETHAZINE HYDROCHLORIDE
     Dosage: UNCLEAR AMOUNT OF TABLETS
     Route: 048
     Dates: start: 20190208, end: 20190209
  3. IMOVANE [Suspect]
     Active Substance: ZOPICLONE
     Dosage: UNCLEAR AMOUNT OF TABLETS
     Route: 048
     Dates: start: 20190208, end: 20190209

REACTIONS (4)
  - Tachycardia [Unknown]
  - Intentional overdose [Unknown]
  - Vomiting [Unknown]
  - Dizziness [Unknown]

NARRATIVE: CASE EVENT DATE: 20190208
